FAERS Safety Report 6487981-X (Version None)
Quarter: 2009Q4

REPORT INFORMATION
  Report Type: 
  Country: None (occurrence: None)
  Receive Date: 20091210
  Receipt Date: 20091130
  Transmission Date: 20100525
  Serious: Yes (Hospitalization)
  Sender: FDA-Public Use
  Company Number: PHHY2009JP50846

PATIENT
  Age: 51 Year
  Sex: Female

DRUGS (6)
  1. CYCLOSPORINE [Suspect]
     Indication: DERMATOMYOSITIS
  2. CYCLOSPORINE [Suspect]
     Indication: INTERSTITIAL LUNG DISEASE
  3. METHOTREXATE [Concomitant]
     Indication: DERMATOMYOSITIS
  4. METHOTREXATE [Concomitant]
     Indication: INTERSTITIAL LUNG DISEASE
  5. STEROIDS NOS [Concomitant]
     Indication: DERMATOMYOSITIS
  6. STEROIDS NOS [Concomitant]
     Indication: INTERSTITIAL LUNG DISEASE

REACTIONS (3)
  - BRAIN NATRIURETIC PEPTIDE INCREASED [None]
  - CARDIAC DISORDER [None]
  - DYSPNOEA [None]
